FAERS Safety Report 13517045 (Version 1)
Quarter: 2017Q2

REPORT INFORMATION
  Report Type: Spontaneous
  Country: US (occurrence: US)
  Receive Date: 20170505
  Receipt Date: 20170505
  Transmission Date: 20170830
  Serious: Yes (Hospitalization, Other)
  Sender: FDA-Public Use
  Company Number: US-ZYDUS-014929

PATIENT
  Age: 91 Year
  Sex: Female

DRUGS (4)
  1. WARFARIN [Suspect]
     Active Substance: WARFARIN
     Indication: ANTICOAGULANT THERAPY
     Route: 065
  2. ATENOLOL. [Concomitant]
     Active Substance: ATENOLOL
     Indication: PRODUCT USED FOR UNKNOWN INDICATION
     Route: 065
  3. THIAMAZOLE [Concomitant]
     Active Substance: METHIMAZOLE
     Indication: PRODUCT USED FOR UNKNOWN INDICATION
     Route: 065
  4. FUROSEMIDE. [Concomitant]
     Active Substance: FUROSEMIDE
     Indication: PRODUCT USED FOR UNKNOWN INDICATION
     Route: 065

REACTIONS (17)
  - Rales [Unknown]
  - Local swelling [Unknown]
  - Dysphonia [Unknown]
  - Obstructive airways disorder [Unknown]
  - Condition aggravated [Unknown]
  - Respiratory distress [Unknown]
  - Goitre [Unknown]
  - Cardiac murmur [Unknown]
  - Pulmonary vascular disorder [Unknown]
  - Dyspnoea [Unknown]
  - Ecchymosis [Recovering/Resolving]
  - Tenderness [Unknown]
  - Dysphagia [Not Recovered/Not Resolved]
  - Thyroid haemorrhage [Unknown]
  - Haemoglobin decreased [Unknown]
  - Cardiomegaly [Unknown]
  - Speech disorder [Not Recovered/Not Resolved]
